FAERS Safety Report 6500465-5 (Version None)
Quarter: 2009Q4

REPORT INFORMATION
  Report Type: 
  Country: None (occurrence: None)
  Receive Date: 20091215
  Receipt Date: 20091215
  Transmission Date: 20100525
  Serious: Yes (Hospitalization)
  Sender: FDA-Public Use
  Company Number: None

PATIENT
  Sex: Male
  Weight: 79.47 kg

DRUGS (1)
  1. ALIMTA [Suspect]
     Dosage: 784 MG
     Dates: end: 20091113

REACTIONS (1)
  - DYSPNOEA [None]
